FAERS Safety Report 8681277 (Version 2)
Quarter: 2013Q4

REPORT INFORMATION
  Report Type: Spontaneous
  Country: DE (occurrence: DE)
  Receive Date: 20120725
  Receipt Date: 20131101
  Transmission Date: 20140711
  Serious: Yes (Hospitalization)
  Sender: FDA-Public Use
  Company Number: DE-MSD-1207DEU003858

PATIENT
  Age: 71 Year
  Sex: Female

DRUGS (5)
  1. REMERGIL [Suspect]
     Dosage: UNK
     Dates: end: 20120712
  2. SPIRIVA [Concomitant]
  3. PANTOZOL [Concomitant]
  4. NEBIVOLOL [Concomitant]
     Dosage: 5 MG, UNK
  5. INUVAIR [Concomitant]

REACTIONS (4)
  - Disturbance in attention [Not Recovered/Not Resolved]
  - Hyponatraemia [Not Recovered/Not Resolved]
  - Nausea [Not Recovered/Not Resolved]
  - Dizziness [Not Recovered/Not Resolved]
